APPROVED DRUG PRODUCT: METHYLPHENIDATE HYDROCHLORIDE
Active Ingredient: METHYLPHENIDATE HYDROCHLORIDE
Strength: 40MG
Dosage Form/Route: CAPSULE, EXTENDED RELEASE;ORAL
Application: A079031 | Product #003
Applicant: BARR LABORATORIES INC
Approved: Jul 13, 2012 | RLD: No | RS: No | Type: DISCN